FAERS Safety Report 12608512 (Version 1)
Quarter: 2016Q3

REPORT INFORMATION
  Report Type: Spontaneous
  Country: RO (occurrence: RO)
  Receive Date: 20160729
  Receipt Date: 20160729
  Transmission Date: 20161109
  Serious: Yes (Death, Life-Threatening)
  Sender: FDA-Public Use
  Company Number: RO-B.I. PHARMACEUTICALS,INC./RIDGEFIELD-2016-BI-49367RN

PATIENT
  Age: 67 Year
  Sex: Male
  Weight: 90 kg

DRUGS (4)
  1. PRADAXA [Suspect]
     Active Substance: DABIGATRAN ETEXILATE MESYLATE
     Indication: ATRIAL FIBRILLATION
     Dosage: 300 MG
     Route: 048
     Dates: start: 20160718, end: 20160719
  2. CLEXANE [Concomitant]
     Active Substance: ENOXAPARIN SODIUM
     Dosage: DOSE PER APPLICATION: 6000XA IU/0.6ML; DAILY DOSE: 12000XA IU/0.12ML
     Route: 065
  3. PANTOPRAZOLE [Concomitant]
     Active Substance: PANTOPRAZOLE SODIUM
     Indication: PRODUCT USED FOR UNKNOWN INDICATION
     Route: 042
  4. CLEXANE [Concomitant]
     Active Substance: ENOXAPARIN SODIUM
     Indication: PRODUCT USED FOR UNKNOWN INDICATION
     Dosage: 0.62 MG
     Route: 058

REACTIONS (1)
  - Gastrointestinal haemorrhage [Fatal]

NARRATIVE: CASE EVENT DATE: 20160718
